FAERS Safety Report 4683060-2 (Version None)
Quarter: 2005Q2

REPORT INFORMATION
  Report Type: 
  Country: None (occurrence: None)
  Receive Date: 20050606
  Receipt Date: 20050420
  Transmission Date: 20051028
  Serious: Yes (Life-Threatening, Hospitalization)
  Sender: FDA-Public Use
  Company Number: US-MERCK-0504USA03642

PATIENT
  Age: 84 Year
  Sex: Female

DRUGS (4)
  1. VIOXX [Suspect]
     Indication: ARTHRITIS
     Route: 048
     Dates: end: 20040101
  2. AMBIEN [Concomitant]
     Route: 065
  3. COLACE [Concomitant]
     Route: 065
  4. BEXTRA [Concomitant]
     Route: 065
     Dates: start: 20040414

REACTIONS (4)
  - BACK INJURY [None]
  - BACK PAIN [None]
  - DEEP VEIN THROMBOSIS [None]
  - FALL [None]
